FAERS Safety Report 6527877-8 (Version None)
Quarter: 2010Q1

REPORT INFORMATION
  Report Type: 
  Country: None (occurrence: None)
  Receive Date: 20100105
  Receipt Date: 20100105
  Transmission Date: 20100710
  Serious: No
  Sender: FDA-Public Use
  Company Number: None

PATIENT
  Age: 63 Year
  Sex: Male

DRUGS (1)
  1. VANCOMYCIN [Suspect]
     Indication: ARTHRITIS BACTERIAL
     Dosage: 2 GM BID IV
     Route: 042
     Dates: start: 20091006, end: 20091013

REACTIONS (4)
  - ANGIOEDEMA [None]
  - LIP SWELLING [None]
  - RASH ERYTHEMATOUS [None]
  - RASH PRURITIC [None]
